FAERS Safety Report 6332931-X (Version None)
Quarter: 2009Q3

REPORT INFORMATION
  Report Type: 
  Country: None (occurrence: None)
  Receive Date: 20090828
  Receipt Date: 20090818
  Transmission Date: 20100115
  Serious: Yes (Death)
  Sender: FDA-Public Use
  Company Number: ZA-PFIZER INC-2009250515

PATIENT
  Age: 77 Year

DRUGS (2)
  1. CELEBREX [Suspect]
     Indication: BACK PAIN
     Dosage: 200 MG, 2X/DAY
     Route: 048
     Dates: start: 20090803, end: 20090805
  2. TRAMACET [Concomitant]
     Indication: BACK PAIN
     Dosage: 37.5/325 MG
     Route: 048
     Dates: start: 20090803, end: 20090805

REACTIONS (2)
  - DIZZINESS [None]
  - ELDERLY [None]
